FAERS Safety Report 22890290 (Version 2)
Quarter: 2023Q4

REPORT INFORMATION
  Report Type: Spontaneous
  Country: JP (occurrence: JP)
  Receive Date: 20230831
  Receipt Date: 20231227
  Transmission Date: 20240110
  Serious: Yes (Death, Life-Threatening)
  Sender: FDA-Public Use
  Company Number: JP-NShinyaku-EVA202301679ZZLILLY

PATIENT
  Age: 86 Year
  Sex: Female
  Weight: 47.5 kg

DRUGS (4)
  1. TADALAFIL [Suspect]
     Active Substance: TADALAFIL
     Indication: Pulmonary veno-occlusive disease
     Dosage: 20 MG, DAILY
     Route: 048
     Dates: start: 20211223, end: 20220120
  2. TADALAFIL [Suspect]
     Active Substance: TADALAFIL
     Indication: Pulmonary capillary haemangiomatosis
  3. OPSUMIT [Suspect]
     Active Substance: MACITENTAN
     Indication: Pulmonary veno-occlusive disease
     Dosage: 10 MG, UNKNOWN
     Route: 048
     Dates: start: 20211223
  4. OPSUMIT [Suspect]
     Active Substance: MACITENTAN
     Indication: Pulmonary capillary haemangiomatosis

REACTIONS (2)
  - Pulmonary congestion [Recovering/Resolving]
  - Sudden cardiac death [Fatal]

NARRATIVE: CASE EVENT DATE: 20220115
